FAERS Safety Report 5455403-3 (Version None)
Quarter: 2007Q3

REPORT INFORMATION
  Report Type: 
  Country: None (occurrence: None)
  Receive Date: 20070913
  Receipt Date: 20070913
  Transmission Date: 20080115
  Serious: Yes (Other)
  Sender: FDA-Public Use
  Company Number: None

PATIENT
  Sex: Male
  Weight: 79.3795 kg

DRUGS (1)
  1. CHANTIX [Suspect]
     Indication: SMOKING CESSATION THERAPY
     Dosage: AS DIRECTED PO
     Route: 048
     Dates: start: 20070709, end: 20070723

REACTIONS (4)
  - DRUG INEFFECTIVE [None]
  - FEAR [None]
  - IRRITABILITY [None]
  - NIGHTMARE [None]
